FAERS Safety Report 10543257 (Version 1)
Quarter: 2014Q4

REPORT INFORMATION
  Report Type: Spontaneous
  Country: US (occurrence: None)
  Receive Date: 20141024
  Receipt Date: 20141024
  Transmission Date: 20150529
  Serious: Yes (Other)
  Sender: FDA-Public Use
  Company Number: None

PATIENT
  Age: 34 Year
  Sex: Female
  Weight: 102.06 kg

DRUGS (2)
  1. XANAX [Suspect]
     Active Substance: ALPRAZOLAM
  2. ALPRAZOLAM 0.5 MG PUREPAC [Suspect]
     Active Substance: ALPRAZOLAM

REACTIONS (5)
  - Panic disorder [None]
  - Product substitution issue [None]
  - Disease recurrence [None]
  - Product quality issue [None]
  - Fear of death [None]

NARRATIVE: CASE EVENT DATE: 201404
